FAERS Safety Report 14961628 (Version 1)
Quarter: 2018Q2

REPORT INFORMATION
  Report Type: Spontaneous
  Country: PT (occurrence: PT)
  Receive Date: 20180601
  Receipt Date: 20180601
  Transmission Date: 20180711
  Serious: Yes (Other)
  Sender: FDA-Public Use
  Company Number: PT-MACLEODS PHARMACEUTICALS US LTD-MAC2018013980

PATIENT

DRUGS (2)
  1. OLANZAPINE. [Suspect]
     Active Substance: OLANZAPINE
     Indication: ADJUSTMENT DISORDER WITH DEPRESSED MOOD
  2. OLANZAPINE. [Suspect]
     Active Substance: OLANZAPINE
     Indication: AGGRESSION
     Dosage: UNK
     Route: 065

REACTIONS (4)
  - Glycosylated haemoglobin increased [Recovered/Resolved]
  - Hypertriglyceridaemia [Recovered/Resolved]
  - Hypercholesterolaemia [Recovered/Resolved]
  - Xanthoma [Recovered/Resolved]
